FAERS Safety Report 25988436 (Version 3)
Quarter: 2025Q4

REPORT INFORMATION
  Report Type: Spontaneous
  Country: US (occurrence: US)
  Receive Date: 20251103
  Receipt Date: 20251118
  Transmission Date: 20260118
  Serious: Yes (Other)
  Sender: SANOFI AVENTIS
  Company Number: US-SA-2025SA319808

PATIENT
  Age: 64 Year
  Sex: Female

DRUGS (4)
  1. DUPIXENT [Suspect]
     Active Substance: DUPILUMAB
     Indication: Chronic obstructive pulmonary disease
     Dosage: 600 MG, 1X
     Route: 058
     Dates: start: 20251021, end: 20251021
  2. SPIRIVA [Concomitant]
     Active Substance: TIOTROPIUM BROMIDE MONOHYDRATE
  3. ATROVENT [Concomitant]
     Active Substance: IPRATROPIUM BROMIDE
  4. PULMICORT TURBUHALER [Concomitant]
     Active Substance: BUDESONIDE

REACTIONS (8)
  - Asphyxia [Unknown]
  - Condition aggravated [Unknown]
  - Dyspnoea [Unknown]
  - Feeling abnormal [Unknown]
  - Bone pain [Unknown]
  - Myalgia [Unknown]
  - Nasopharyngitis [Unknown]
  - Injection site pain [Unknown]

NARRATIVE: CASE EVENT DATE: 20251001
